FAERS Safety Report 18674481 (Version 1)
Quarter: 2020Q4

REPORT INFORMATION
  Report Type: Spontaneous
  Country: US (occurrence: US)
  Receive Date: 20201228
  Receipt Date: 20201228
  Transmission Date: 20210114
  Serious: Yes (Death)
  Sender: FDA-Public Use
  Company Number: US-JNJFOC-20201248366

PATIENT
  Age: 50 Year
  Sex: Male

DRUGS (3)
  1. DURAGESIC [Suspect]
     Active Substance: FENTANYL
     Indication: PRODUCT USED FOR UNKNOWN INDICATION
     Route: 065
  2. MORPHINE [Suspect]
     Active Substance: MORPHINE
     Indication: PRODUCT USED FOR UNKNOWN INDICATION
     Route: 065
  3. METHAMPHETAMINE HCL [Suspect]
     Active Substance: METHAMPHETAMINE HYDROCHLORIDE
     Indication: PRODUCT USED FOR UNKNOWN INDICATION
     Route: 065

REACTIONS (2)
  - Toxicity to various agents [Fatal]
  - Drug abuse [Fatal]
